FAERS Safety Report 9852533 (Version 3)
Quarter: 2014Q1

REPORT INFORMATION
  Report Type: Spontaneous
  Country: US (occurrence: US)
  Receive Date: 20140129
  Receipt Date: 20140313
  Transmission Date: 20141002
  Serious: No
  Sender: FDA-Public Use
  Company Number: US-PFIZER INC-2014026068

PATIENT
  Sex: Female

DRUGS (6)
  1. PRISTIQ [Suspect]
     Indication: DEPRESSION
     Dosage: 150 MG, 1X/DAY
     Route: 048
     Dates: start: 201006, end: 20140119
  2. TOPAMAX [Concomitant]
     Indication: MIGRAINE
     Dosage: 25 MG, 2X/DAY
  3. WELLBUTRIN [Concomitant]
     Dosage: 150 MG, UNK
  4. SYNTHROID [Concomitant]
     Dosage: 100 UG, UNK
  5. ATORVASTATIN [Concomitant]
     Dosage: 10 MG, UNK
  6. AMBIEN [Concomitant]
     Dosage: 10 MG, AS NEEDED

REACTIONS (3)
  - Accident [Unknown]
  - Depression [Unknown]
  - Fear [Unknown]
